FAERS Safety Report 9013789 (Version 2)
Quarter: 2013Q1

REPORT INFORMATION
  Report Type: Spontaneous
  Country: DE (occurrence: None)
  Receive Date: 20121231
  Receipt Date: 20130325
  Transmission Date: 20140127
  Serious: Yes (Other)
  Sender: FDA-Public Use
  Company Number: VAL_01209_2012

PATIENT
  Age: 58 Year
  Sex: Female

DRUGS (8)
  1. METOPROLOL [Suspect]
     Indication: HYPERTENSION
     Dosage: (190 MG, 190 MG) UNKNOWN THERAPY DATES
  2. VALSARTAN [Suspect]
     Indication: HYPERTENSION
     Dosage: ({320 MG, {320 MG] ) UNKNOWN THERAPY DATES
  3. MINOXIDIL [Suspect]
     Indication: HYPERTENSION
     Dosage: (10 MG, [10 MG] ) (UNKNOWN THERAPY DATES)
  4. SPIRONOLACTONE [Suspect]
     Indication: PRODUCT USED FOR UNKNOWN INDICATION
     Dosage: (25 MG, [25 MG] ) (UNKNOWN THERAPY DATES)
  5. FUROSEMIDE [Suspect]
     Indication: PRODUCT USED FOR UNKNOWN INDICATION
     Dosage: (60 MG ,  [60 MG ] ) (UNKNOWN THERAPY DATES)
  6. HYDROCHLOROTHIAZIDE [Concomitant]
  7. DIGOXIN [Concomitant]
  8. ASPIRIN [Concomitant]

REACTIONS (8)
  - Cardiac failure [None]
  - Atrial fibrillation [None]
  - Hypertension [None]
  - Left atrial dilatation [None]
  - Mitral valve incompetence [None]
  - Disease recurrence [None]
  - Angina pectoris [None]
  - Diastolic dysfunction [None]
